FAERS Safety Report 16349880 (Version 1)
Quarter: 2019Q2

REPORT INFORMATION
  Report Type: Spontaneous
  Country: IT (occurrence: IT)
  Receive Date: 20190523
  Receipt Date: 20190523
  Transmission Date: 20190711
  Serious: Yes (Other)
  Sender: FDA-Public Use
  Company Number: IT-PFIZER INC-2019215945

PATIENT
  Age: 23 Year
  Sex: Male

DRUGS (4)
  1. TORA-DOL [Suspect]
     Active Substance: KETOROLAC TROMETHAMINE
     Indication: TOOTHACHE
     Dosage: 10 MG, SINGLE
     Route: 030
     Dates: start: 20190114, end: 20190114
  2. VOLTAREN [Suspect]
     Active Substance: DICLOFENAC SODIUM
     Indication: TOOTHACHE
     Dosage: 75 MG, SINGLE
     Route: 030
     Dates: start: 20190114, end: 20190114
  3. NIMESULIDE [Concomitant]
     Active Substance: NIMESULIDE
     Dosage: UNK
  4. LINCOCIN [Suspect]
     Active Substance: LINCOMYCIN
     Indication: TOOTHACHE
     Dosage: 1200 MG, SINGLE
     Route: 030
     Dates: start: 20190114, end: 20190114

REACTIONS (3)
  - Abdominal pain [Recovering/Resolving]
  - Drug abuse [Recovering/Resolving]
  - Tachycardia [Recovering/Resolving]

NARRATIVE: CASE EVENT DATE: 20190114
